FAERS Safety Report 7555998-X (Version None)
Quarter: 2011Q2

REPORT INFORMATION
  Report Type: 
  Country: None (occurrence: None)
  Receive Date: 20110620
  Receipt Date: 20110612
  Transmission Date: 20111010
  Serious: Yes (Other)
  Sender: FDA-Public Use
  Company Number: IL-AMGEN-ISRSP2011008847

PATIENT
  Age: 77 Year
  Sex: Female

DRUGS (12)
  1. MONONIT [Concomitant]
     Dosage: UNK
  2. DIOVAN IC [Concomitant]
     Dosage: UNK
  3. GLUCOMIN [Concomitant]
     Dosage: UNK
  4. NORMITEN [Concomitant]
     Dosage: UNK
  5. ARAVA [Concomitant]
     Dosage: UNK
  6. LEVOTHYROXINE SODIUM [Concomitant]
     Dosage: UNK
  7. LIPITOR [Concomitant]
     Dosage: UNK
  8. ENBREL [Suspect]
     Indication: PSORIATIC ARTHROPATHY
     Dosage: 25 MG, 2X/WEEK
     Dates: start: 20110110
  9. LANSOPRAZOLE [Concomitant]
     Dosage: UNK
  10. FUSID                              /00032601/ [Concomitant]
     Dosage: UNK
  11. PLAVIX [Concomitant]
     Dosage: UNK
  12. PLAQUENIL [Concomitant]
     Dosage: UNK

REACTIONS (2)
  - ARTHRALGIA [None]
  - PNEUMONIA [None]
